FAERS Safety Report 24278495 (Version 1)
Quarter: 2024Q3

REPORT INFORMATION
  Report Type: Spontaneous
  Country: US (occurrence: US)
  Receive Date: 20240903
  Receipt Date: 20240903
  Transmission Date: 20241017
  Serious: Yes (Other)
  Sender: HIKMA
  Company Number: US-HIKMA PHARMACEUTICALS USA INC.-US-H14001-24-08036

PATIENT

DRUGS (1)
  1. METHAMPHETAMINE [Suspect]
     Active Substance: METHAMPHETAMINE
     Indication: Product used for unknown indication
     Dosage: UNKNOWN
     Route: 064

REACTIONS (17)
  - Neonatal respiratory failure [Unknown]
  - Hypoglycaemia [Unknown]
  - Hyperbilirubinaemia [Unknown]
  - Metabolic acidosis [Unknown]
  - Thrombocytopenia [Unknown]
  - Bone disorder [Unknown]
  - Bone erosion [Unknown]
  - Congenital syphilis [Unknown]
  - Neurosyphilis [Unknown]
  - Gonorrhoea [Unknown]
  - Chlamydial infection [Unknown]
  - Neonatal hypoacusis [Unknown]
  - Newborn persistent pulmonary hypertension [Unknown]
  - Poor feeding infant [Unknown]
  - Haematochezia [Unknown]
  - Staphylococcal infection [Unknown]
  - Foetal exposure during pregnancy [Unknown]
